FAERS Safety Report 5044363-5 (Version None)
Quarter: 2006Q2

REPORT INFORMATION
  Report Type: 
  Country: None (occurrence: None)
  Receive Date: 20060629
  Receipt Date: 20060616
  Transmission Date: 20061013
  Serious: Yes (Hospitalization)
  Sender: FDA-Public Use
  Company Number: 2006077413

PATIENT
  Age: 61 Year
  Sex: Female
  Weight: 91 kg

DRUGS (1)
  1. AROMASIN [Suspect]
     Indication: BREAST CANCER FEMALE
     Dosage: 25 MG (25 MG, 1 IN 1 D), ORAL
     Route: 048
     Dates: start: 20031001

REACTIONS (8)
  - FALL [None]
  - HAEMATOMA [None]
  - HUMERUS FRACTURE [None]
  - INJURY [None]
  - JOINT INJURY [None]
  - OSTEOPOROSIS [None]
  - PAIN [None]
  - PROCEDURAL PAIN [None]
